FAERS Safety Report 4592738-0 (Version None)
Quarter: 2005Q1

REPORT INFORMATION
  Report Type: 
  Country: None (occurrence: None)
  Receive Date: 20050222
  Receipt Date: 20050206
  Transmission Date: 20050727
  Serious: Yes (Death)
  Sender: FDA-Public Use
  Company Number: 2005024377

PATIENT
  Age: 72 Year
  Sex: Female

DRUGS (5)
  1. ZITHROMAX [Suspect]
     Dosage: 500 MG (500 MG, 1 IN D), INTRAVENOUS
     Route: 042
     Dates: start: 20050130, end: 20050201
  2. INSULIN [Concomitant]
  3. BETA BLOCKING AGENTS (BETA BLOCKING AGENTS) [Concomitant]
  4. LEVOFLOXACIN [Concomitant]
  5. CEFOTAXIME SODIUM [Concomitant]

REACTIONS (2)
  - CONDITION AGGRAVATED [None]
  - PNEUMONIA [None]
